FAERS Safety Report 7800055-8 (Version None)
Quarter: 2011Q4

REPORT INFORMATION
  Report Type: 
  Country: None (occurrence: None)
  Receive Date: 20111006
  Receipt Date: 20110928
  Transmission Date: 20120403
  Serious: Yes (Hospitalization)
  Sender: FDA-Public Use
  Company Number: US-CELGENEUS-163-20785-11091632

PATIENT
  Sex: Female

DRUGS (2)
  1. THALOMID [Suspect]
     Dosage: 50 MILLIGRAM
     Route: 048
     Dates: start: 20110901
  2. THALOMID [Suspect]
     Indication: MULTIPLE MYELOMA
     Dosage: 200 MILLIGRAM
     Route: 048
     Dates: start: 20110801, end: 20110101

REACTIONS (6)
  - HYPONATRAEMIA [None]
  - MULTIPLE MYELOMA [None]
  - RENAL FAILURE [None]
  - DIARRHOEA [None]
  - FALL [None]
  - CONFUSIONAL STATE [None]
